FAERS Safety Report 14700327 (Version 2)
Quarter: 2018Q2

REPORT INFORMATION
  Report Type: Spontaneous
  Country: FR (occurrence: FR)
  Receive Date: 20180330
  Receipt Date: 20180420
  Transmission Date: 20180711
  Serious: Yes (Hospitalization, Other)
  Sender: FDA-Public Use
  Company Number: FR-BAUSCH-BL-2018-007199

PATIENT
  Age: 3 Year
  Sex: Female

DRUGS (18)
  1. DEXAMETHASONE. [Suspect]
     Active Substance: DEXAMETHASONE
     Dosage: 42 MG, UNK
     Route: 065
     Dates: start: 20171009, end: 20171015
  2. 6-MERCAPTOPURINE MONOHYDRATE [Suspect]
     Active Substance: MERCAPTOPURINE
     Indication: ACUTE LYMPHOCYTIC LEUKAEMIA
     Route: 065
     Dates: start: 20171025, end: 20171112
  3. DEXAMETHASONE. [Suspect]
     Active Substance: DEXAMETHASONE
     Indication: ACUTE LYMPHOCYTIC LEUKAEMIA
     Dosage: 42 MG, UNK
     Route: 065
     Dates: start: 20170925, end: 20171001
  4. METHOTREXATE. [Suspect]
     Active Substance: METHOTREXATE
     Dosage: 12 MG, UNK
     Route: 037
     Dates: start: 20171219, end: 20171219
  5. VINCRISTINE [Suspect]
     Active Substance: VINCRISTINE
     Indication: ACUTE LYMPHOCYTIC LEUKAEMIA
     Dosage: 0.86 MG, UNK
     Route: 042
     Dates: start: 20170925, end: 20171009
  6. CYCLOPHOSPHAMIDE. [Suspect]
     Active Substance: CYCLOPHOSPHAMIDE
     Indication: ACUTE LYMPHOCYTIC LEUKAEMIA
     Dosage: 580 MG, UNK
     Route: 065
     Dates: start: 20171025, end: 20171112
  7. DOXORUBICIN [Suspect]
     Active Substance: DOXORUBICIN
     Indication: ACUTE LYMPHOCYTIC LEUKAEMIA
     Dosage: 14.4 MG, UNK
     Route: 042
     Dates: start: 20170925, end: 20171009
  8. XALUPRINE [Suspect]
     Active Substance: MERCAPTOPURINE
     Indication: ACUTE LYMPHOCYTIC LEUKAEMIA
     Route: 048
  9. CYTARABINE. [Suspect]
     Active Substance: CYTARABINE
     Dosage: 174 MG, UNK
     Route: 065
     Dates: start: 20171103, end: 20171106
  10. XALUPRINE [Suspect]
     Active Substance: MERCAPTOPURINE
     Route: 048
     Dates: start: 20171211, end: 20171227
  11. METHOTREXATE. [Suspect]
     Active Substance: METHOTREXATE
     Dosage: 300 MG, UNK
     Route: 042
     Dates: start: 20171211, end: 20171211
  12. CYTARABINE. [Suspect]
     Active Substance: CYTARABINE
     Indication: ACUTE LYMPHOCYTIC LEUKAEMIA
     Dosage: 30 MG, UNK
     Route: 037
     Dates: start: 20170928, end: 20171027
  13. CYTARABINE. [Suspect]
     Active Substance: CYTARABINE
     Dosage: 174 MG, UNK
     Route: 065
     Dates: start: 20171027, end: 20171030
  14. ONCASPAR [Suspect]
     Active Substance: PEGASPARGASE
     Indication: ACUTE LYMPHOCYTIC LEUKAEMIA
     Dosage: 1425 IU, UNK
     Route: 042
     Dates: start: 20170928, end: 20171113
  15. METHOTREXATE. [Suspect]
     Active Substance: METHOTREXATE
     Dosage: 15 MG, UNK
     Route: 048
     Dates: start: 20171211, end: 20171226
  16. VINCRISTINE [Suspect]
     Active Substance: VINCRISTINE
     Dosage: 0.87 MG, UNK
     Route: 042
     Dates: start: 20171113, end: 20171120
  17. METHOTREXATE. [Suspect]
     Active Substance: METHOTREXATE
     Indication: ACUTE LYMPHOCYTIC LEUKAEMIA
     Dosage: 12 MG, UNK
     Route: 037
     Dates: start: 20170928, end: 20171027
  18. METHOTREXATE. [Suspect]
     Active Substance: METHOTREXATE
     Dosage: 7.5 MG, UNK
     Route: 048

REACTIONS (4)
  - Respiratory syncytial virus infection [Recovered/Resolved]
  - Lung disorder [Recovered/Resolved]
  - Febrile bone marrow aplasia [Recovered/Resolved]
  - Pulmonary haemorrhage [Recovered/Resolved]

NARRATIVE: CASE EVENT DATE: 20171227
